FAERS Safety Report 17717400 (Version 3)
Quarter: 2020Q4

REPORT INFORMATION
  Report Type: Spontaneous
  Country: US (occurrence: US)
  Receive Date: 20200428
  Receipt Date: 20201216
  Transmission Date: 20210113
  Serious: No
  Sender: FDA-Public Use
  Company Number: US-PFIZER INC-2020168436

PATIENT
  Age: 74 Year
  Sex: Female
  Weight: 70 kg

DRUGS (1)
  1. CELEBREX [Suspect]
     Active Substance: CELECOXIB
     Indication: ARTHRITIS
     Dosage: 200 MG, 1X/DAY

REACTIONS (6)
  - Gastrooesophageal reflux disease [Unknown]
  - Condition aggravated [Unknown]
  - Intentional product use issue [Unknown]
  - Therapeutic response unexpected [Unknown]
  - Dyspepsia [Unknown]
  - Musculoskeletal stiffness [Unknown]
